FAERS Safety Report 4997929-2 (Version None)
Quarter: 2006Q2

REPORT INFORMATION
  Report Type: 
  Country: None (occurrence: None)
  Receive Date: 20060508
  Receipt Date: 20060424
  Transmission Date: 20061013
  Serious: Yes (Other)
  Sender: FDA-Public Use
  Company Number: 2006056914

PATIENT
  Age: 56 Year
  Sex: Male
  Weight: 68.0396 kg

DRUGS (3)
  1. VIAGRA [Suspect]
     Indication: ERECTILE DYSFUNCTION
     Dosage: (AS NECESSARY), ORAL
     Route: 048
  2. LISINOPRIL [Concomitant]
  3. ASPIRIN [Concomitant]

REACTIONS (3)
  - CYANOPSIA [None]
  - DENTAL CARIES [None]
  - WRONG TECHNIQUE IN DRUG USAGE PROCESS [None]
